FAERS Safety Report 17565922 (Version 1)
Quarter: 2020Q1

REPORT INFORMATION
  Report Type: Spontaneous
  Country: FR (occurrence: FR)
  Receive Date: 20200320
  Receipt Date: 20200320
  Transmission Date: 20200409
  Serious: Yes (Hospitalization)
  Sender: FDA-Public Use
  Company Number: FR-PFIZER INC-2020115980

PATIENT
  Age: 52 Year
  Sex: Male
  Weight: 119 kg

DRUGS (4)
  1. PARACETAMOL [Concomitant]
     Active Substance: ACETAMINOPHEN
     Indication: SUPERINFECTION
     Dosage: UNK
     Route: 048
     Dates: start: 20200201
  2. IBUPROFEN. [Suspect]
     Active Substance: IBUPROFEN
     Indication: SUPERINFECTION
     Dosage: UNK
     Route: 048
     Dates: start: 20200201, end: 20200208
  3. AUGMENTINE [Suspect]
     Active Substance: AMOXICILLIN\CLAVULANATE POTASSIUM
     Indication: SUPERINFECTION
     Dosage: UNK
     Route: 048
     Dates: start: 20200201, end: 20200208
  4. AUGMENTINE [Suspect]
     Active Substance: AMOXICILLIN\CLAVULANATE POTASSIUM
     Dosage: UNK
     Route: 042
     Dates: start: 20200209, end: 20200210

REACTIONS (2)
  - Rash erythematous [Recovered/Resolved]
  - Product use issue [Unknown]

NARRATIVE: CASE EVENT DATE: 20200201
